FAERS Safety Report 4794754-2 (Version None)
Quarter: 2005Q4

REPORT INFORMATION
  Report Type: 
  Country: None (occurrence: None)
  Receive Date: 20051011
  Receipt Date: 20050705
  Transmission Date: 20060501
  Serious: Yes (Life-Threatening, Hospitalization)
  Sender: FDA-Public Use
  Company Number: DE-MERCK-0507DEU00025

PATIENT
  Age: 64 Year
  Sex: Male
  Weight: 71 kg

DRUGS (2)
  1. VYTORIN [Suspect]
     Indication: MIXED HYPERLIPIDAEMIA
     Route: 048
     Dates: start: 20040826, end: 20041101
  2. HYDROCHLOROTHIAZIDE AND LOSARTAN POTASSIUM [Concomitant]
     Indication: HYPERTENSION
     Route: 048
     Dates: start: 20010703

REACTIONS (3)
  - PANCREATITIS NECROTISING [None]
  - PLEURAL EFFUSION [None]
  - PSEUDOCYST [None]
